FAERS Safety Report 25765910 (Version 1)
Quarter: 2025Q3

REPORT INFORMATION
  Report Type: Spontaneous
  Country: US (occurrence: US)
  Receive Date: 20250905
  Receipt Date: 20250905
  Transmission Date: 20251020
  Serious: No
  Sender: DOMPE FARMACEUTICI
  Company Number: US-FARMAPROD-202407-2627

PATIENT
  Age: 69 Year
  Sex: Female

DRUGS (15)
  1. OXERVATE [Suspect]
     Active Substance: CENEGERMIN-BKBJ
     Indication: Corneal disorder
     Route: 047
     Dates: start: 20240711
  2. BIOTENE MOUTH SPRAY AND GEL [Concomitant]
  3. BIOTENE MOUTH SPRAY AND GEL [Concomitant]
  4. FIBER SOURCE [Concomitant]
  5. ATORVASTATIN CALCIUM [Concomitant]
     Active Substance: ATORVASTATIN CALCIUM
  6. POTASSIUM CHLORIDE [Concomitant]
     Active Substance: POTASSIUM CHLORIDE
  7. SODIUM ASCORBATE [Concomitant]
     Active Substance: SODIUM ASCORBATE
  8. DOCUSATE CALCIUM [Concomitant]
     Active Substance: DOCUSATE CALCIUM
  9. MIRALAX [Concomitant]
     Active Substance: POLYETHYLENE GLYCOL 3350
  10. SUCRALFATE [Concomitant]
     Active Substance: SUCRALFATE
  11. ARTIFICIAL TEARS [Concomitant]
  12. REFRESH CELLUVISC [Concomitant]
     Active Substance: CARBOXYMETHYLCELLULOSE SODIUM
  13. FLUORESCEIN-BENOXINATE [Concomitant]
  14. OFLOXACIN [Concomitant]
     Active Substance: OFLOXACIN
  15. PREVACID [Concomitant]
     Active Substance: LANSOPRAZOLE

REACTIONS (2)
  - Eye pain [Unknown]
  - Ocular hyperaemia [Unknown]

NARRATIVE: CASE EVENT DATE: 20240714
